FAERS Safety Report 10421124 (Version 1)
Quarter: 2014Q3

REPORT INFORMATION
  Report Type: Spontaneous
  Country: US (occurrence: US)
  Receive Date: 20140830
  Receipt Date: 20140830
  Transmission Date: 20150326
  Serious: No
  Sender: FDA-Public Use
  Company Number: US-AMGEN INC.-USASP2014062972

PATIENT
  Age: 56 Year
  Sex: Female

DRUGS (9)
  1. PREDNISONE. [Suspect]
     Active Substance: PREDNISONE
     Indication: PAIN IN EXTREMITY
  2. PREDNISONE. [Suspect]
     Active Substance: PREDNISONE
     Indication: SKIN INDURATION
  3. PLAQUENIL [Concomitant]
     Active Substance: HYDROXYCHLOROQUINE SULFATE
     Dosage: 200 MG, TWICE A DAY
     Dates: start: 199311
  4. PREDNISONE. [Suspect]
     Active Substance: PREDNISONE
     Indication: ERYTHEMA
     Dosage: UNK
     Route: 065
  5. ENBREL [Suspect]
     Active Substance: ETANERCEPT
     Indication: RHEUMATOID ARTHRITIS
     Dosage: 50 MG, QWK
     Route: 065
     Dates: start: 199909
  6. PREDNISONE. [Suspect]
     Active Substance: PREDNISONE
     Indication: LOCAL SWELLING
  7. METHOTREXATE [Concomitant]
     Active Substance: METHOTREXATE
     Dosage: 1 ML, QWK
     Dates: start: 199903
  8. ENBREL [Suspect]
     Active Substance: ETANERCEPT
     Indication: PSORIASIS
  9. ENBREL [Suspect]
     Active Substance: ETANERCEPT
     Indication: PSORIATIC ARTHROPATHY

REACTIONS (19)
  - Osteopenia [Not Recovered/Not Resolved]
  - Musculoskeletal pain [Not Recovered/Not Resolved]
  - Insomnia [Not Recovered/Not Resolved]
  - Vascular injury [Recovered/Resolved]
  - Tendon pain [Not Recovered/Not Resolved]
  - Contusion [Not Recovered/Not Resolved]
  - Pain in extremity [Not Recovered/Not Resolved]
  - Skin induration [Not Recovered/Not Resolved]
  - Injection site haemorrhage [Recovered/Resolved]
  - Fibromyalgia [Not Recovered/Not Resolved]
  - Arthralgia [Not Recovered/Not Resolved]
  - Back pain [Not Recovered/Not Resolved]
  - Neck pain [Not Recovered/Not Resolved]
  - Erythema [Not Recovered/Not Resolved]
  - Peripheral swelling [Not Recovered/Not Resolved]
  - Breast disorder [Not Recovered/Not Resolved]
  - Visual acuity reduced [Not Recovered/Not Resolved]
  - Pain [Not Recovered/Not Resolved]
  - Accidental exposure to product [Recovered/Resolved]

NARRATIVE: CASE EVENT DATE: 201407
